FAERS Safety Report 10568297 (Version 1)
Quarter: 2014Q4

REPORT INFORMATION
  Report Type: Spontaneous
  Country: None (occurrence: None)
  Receive Date: 20141024
  Receipt Date: 20141024
  Transmission Date: 20150529
  Serious: No
  Sender: FDA-Public Use
  Company Number: 1428083

PATIENT
  Age: 32 Year
  Sex: Female

DRUGS (5)
  1. SUMATRIPTAN (SUMATRIPTAN) [Concomitant]
     Active Substance: SUMATRIPTAN
  2. PAROXERTINE (PAROXETINE) [Concomitant]
  3. ZELBORAF [Suspect]
     Active Substance: VEMURAFENIB
     Indication: MALIGNANT MELANOMA
     Route: 048
     Dates: start: 20140519, end: 20140617
  4. LEVETIRACETAM (LEVETIRACETAM) [Concomitant]
     Active Substance: LEVETIRACETAM
  5. DEXAMETHASONE (DEXAMETHASONE) [Concomitant]
     Active Substance: DEXAMETHASONE

REACTIONS (6)
  - Rash [None]
  - Pyrexia [None]
  - Nausea [None]
  - Fatigue [None]
  - Muscle spasms [None]
  - Palmar-plantar erythrodysaesthesia syndrome [None]

NARRATIVE: CASE EVENT DATE: 20140601
